FAERS Safety Report 4398851-5 (Version None)
Quarter: 2004Q2

REPORT INFORMATION
  Report Type: 
  Country: None (occurrence: None)
  Receive Date: 20040621
  Receipt Date: 20040213
  Transmission Date: 20050107
  Serious: Yes (Death)
  Sender: FDA-Public Use
  Company Number: USA-2003-0007703

PATIENT
  Age: 53 Year
  Sex: Male
  Weight: 58.5 kg

DRUGS (7)
  1. OXYCODONE HCL [Suspect]
  2. MORPHINE SULFATE [Suspect]
  3. ALPRAZOLAM [Suspect]
  4. DIPHENHYDRAMINE HCL [Suspect]
  5. CODEINE ( CODEINE) [Suspect]
  6. CAFFEINE (CAFFEINE) [Suspect]
  7. NICOTINE [Suspect]

REACTIONS (1)
  - MULTIPLE DRUG OVERDOSE ACCIDENTAL [None]
